FAERS Safety Report 4786738-5 (Version None)
Quarter: 2005Q3

REPORT INFORMATION
  Report Type: 
  Country: None (occurrence: None)
  Receive Date: 20050930
  Receipt Date: 20050919
  Transmission Date: 20060218
  Serious: Yes (Hospitalization, Other)
  Sender: FDA-Public Use
  Company Number: 2005131160

PATIENT
  Age: 74 Year
  Sex: Male
  Weight: 77 kg

DRUGS (10)
  1. ZYVOX [Suspect]
     Indication: STAPHYLOCOCCAL INFECTION
     Dosage: 1200 MG (600 MG, BID), INTRAVENOUS
     Route: 042
     Dates: start: 20050802, end: 20050818
  2. ZYVOX [Suspect]
     Indication: STAPHYLOCOCCAL INFECTION
     Dosage: 1200 MG (600 MG, BID), ORAL
     Route: 048
     Dates: start: 20050818, end: 20050913
  3. BENAZEPRIL HCL [Concomitant]
  4. DIGOXIN [Concomitant]
  5. LEXAPRO [Concomitant]
  6. GLIPIZIDE [Concomitant]
  7. METOPROLOL TARTRATE [Concomitant]
  8. PERCOCET [Concomitant]
  9. ACTOS [Concomitant]
  10. PRAVACHOL [Concomitant]

REACTIONS (2)
  - HYPOGLYCAEMIA [None]
  - THROMBOCYTOPENIA [None]
